FAERS Safety Report 8268117-1 (Version None)
Quarter: 2012Q2

REPORT INFORMATION
  Report Type: 
  Country: None (occurrence: None)
  Receive Date: 20120409
  Receipt Date: 20120329
  Transmission Date: 20120825
  Serious: Yes (Hospitalization, Other)
  Sender: FDA-Public Use
  Company Number: US-ELI_LILLY_AND_COMPANY-US201008007848

PATIENT
  Sex: Female

DRUGS (14)
  1. AMLODIPINE [Concomitant]
  2. FORTEO [Suspect]
     Dosage: 20 UG, QD
  3. FORTEO [Suspect]
     Dosage: 20 UG, QD
  4. CARVEDILOL [Concomitant]
  5. LEXAPRO [Concomitant]
  6. CLONIDINE [Concomitant]
  7. FUROSEMIDE [Concomitant]
  8. FOLIC ACID [Concomitant]
  9. SPIRONOLACTONE [Concomitant]
  10. FORTEO [Suspect]
     Indication: OSTEOPOROSIS
     Dosage: 20 UG, DAILY (1/D)
  11. SUCRAFATE [Concomitant]
  12. LIPITOR [Concomitant]
  13. LANSOPRAZOLE [Concomitant]
  14. ASPIRIN [Concomitant]

REACTIONS (6)
  - MEMORY IMPAIRMENT [None]
  - HAEMORRHAGE [None]
  - BLOOD PRESSURE DECREASED [None]
  - ARTHROPATHY [None]
  - HAEMATEMESIS [None]
  - HIP FRACTURE [None]
